FAERS Safety Report 5775095-3 (Version None)
Quarter: 2008Q2

REPORT INFORMATION
  Report Type: 
  Country: None (occurrence: None)
  Receive Date: 20080612
  Receipt Date: 20080602
  Transmission Date: 20081010
  Serious: Yes (Other)
  Sender: FDA-Public Use
  Company Number: 2008AP001335

PATIENT
  Age: 85 Year
  Sex: Female

DRUGS (5)
  1. AMIODARONE HCL [Suspect]
     Indication: ATRIAL FIBRILLATION
  2. CARBIDOPA AND LEVODOPA [Concomitant]
  3. ENTACAPONE [Concomitant]
  4. CYPROHEPTADINE HCL [Concomitant]
  5. ALPRAZOLAM [Concomitant]

REACTIONS (13)
  - AMNESIA [None]
  - ANOREXIA [None]
  - DELIRIUM [None]
  - DEPRESSION [None]
  - FAILURE TO THRIVE [None]
  - FATIGUE [None]
  - HALLUCINATIONS, MIXED [None]
  - INSOMNIA [None]
  - MALAISE [None]
  - NIGHTMARE [None]
  - PARKINSONISM [None]
  - SPEECH DISORDER [None]
  - WEIGHT DECREASED [None]
